FAERS Safety Report 14889698 (Version 3)
Quarter: 2019Q4

REPORT INFORMATION
  Report Type: Spontaneous
  Country: US (occurrence: US)
  Receive Date: 20180514
  Receipt Date: 20191227
  Transmission Date: 20200122
  Serious: Yes (Death, Life-Threatening, Hospitalization, Disabling, Other)
  Sender: FDA-Public Use
  Company Number: US-009507513-1805USA002992

PATIENT
  Age: 62 Year
  Sex: Male
  Weight: 68.48 kg

DRUGS (14)
  1. KEYTRUDA [Suspect]
     Active Substance: PEMBROLIZUMAB
     Indication: LUNG CARCINOMA CELL TYPE UNSPECIFIED STAGE IV
  2. EMEND [Concomitant]
     Active Substance: APREPITANT
     Indication: NAUSEA
     Dosage: 150 MILLIGRAM
     Route: 042
     Dates: start: 20180228, end: 20180228
  3. DECADRON [Concomitant]
     Active Substance: DEXAMETHASONE
     Indication: PREMEDICATION
     Dosage: 10 MILLIGRAM
     Route: 042
     Dates: start: 20180228, end: 20180228
  4. PHENERGAN [Concomitant]
     Active Substance: PROMETHAZINE HYDROCHLORIDE
     Indication: NAUSEA
     Dosage: 25 MILLIGRAM, PRN
     Route: 048
     Dates: start: 20180227
  5. KEYTRUDA [Suspect]
     Active Substance: PEMBROLIZUMAB
     Indication: NON-SMALL CELL LUNG CANCER
     Dosage: 200 MILLIGRAM, ONCE TIME DOSE
     Route: 042
     Dates: start: 20180228, end: 20180228
  6. ALOXI [Concomitant]
     Active Substance: PALONOSETRON HYDROCHLORIDE
     Indication: NAUSEA
     Dosage: 0.25 MILLIGRAM
     Route: 042
     Dates: start: 20180228, end: 20180228
  7. MEGACE [Concomitant]
     Active Substance: MEGESTROL ACETATE
     Indication: INCREASED APPETITE
     Dosage: 400 MILLIGRAM, QD
     Route: 048
     Dates: start: 20180227
  8. CYANOCOBALAMIN. [Concomitant]
     Active Substance: CYANOCOBALAMIN
     Indication: CHEMOTHERAPY
     Dosage: 1 MILLIGRAM
     Route: 030
     Dates: start: 20180227, end: 20180227
  9. PREDNISONE. [Concomitant]
     Active Substance: PREDNISONE
     Indication: RASH
     Dosage: 10 MILLIGRAM, QD
     Route: 048
     Dates: start: 20180307
  10. OXYCODONE [Concomitant]
     Active Substance: OXYCODONE
     Indication: PAIN
     Dosage: 5 MILLIGRAM, Q4H
     Route: 048
     Dates: start: 20180227
  11. FOLIC ACID. [Concomitant]
     Active Substance: FOLIC ACID
     Indication: CHEMOTHERAPY
     Dosage: 1 MILLIGRAM, QD
     Route: 048
     Dates: start: 20180227
  12. ALIMTA [Suspect]
     Active Substance: PEMETREXED DISODIUM
     Indication: NON-SMALL CELL LUNG CANCER
     Dosage: 900 MILLIGRAM, FIRST CYCLE
     Route: 042
     Dates: start: 20180228, end: 20180228
  13. CARBOPLATIN. [Suspect]
     Active Substance: CARBOPLATIN
     Indication: NON-SMALL CELL LUNG CANCER
     Dosage: 350 MILLIGRAM, FIRST CYCLE
     Route: 042
     Dates: start: 20180228, end: 20180228
  14. ZOFRAN [Concomitant]
     Active Substance: ONDANSETRON HYDROCHLORIDE
     Indication: NAUSEA
     Dosage: 4 MILLIGRAM, PRN
     Route: 048
     Dates: start: 20180227

REACTIONS (21)
  - Neutropenia [Unknown]
  - Screaming [Unknown]
  - Vascular occlusion [Unknown]
  - Decreased appetite [Unknown]
  - Dyspnoea [Unknown]
  - Respiratory failure [Fatal]
  - Malignant neoplasm progression [Unknown]
  - Acute respiratory failure [Unknown]
  - Lung disorder [Unknown]
  - Pain [Unknown]
  - Anaemia [Unknown]
  - Pneumonia [Fatal]
  - Hallucination [Unknown]
  - Aggression [Unknown]
  - Inflammation [Unknown]
  - Atrial fibrillation [Unknown]
  - Atrial fibrillation [Unknown]
  - Abnormal behaviour [Unknown]
  - Pancytopenia [Unknown]
  - Renal failure [Unknown]
  - Therapy non-responder [Unknown]

NARRATIVE: CASE EVENT DATE: 2018
